FAERS Safety Report 4679866-6 (Version None)
Quarter: 2005Q2

REPORT INFORMATION
  Report Type: 
  Country: None (occurrence: None)
  Receive Date: 20050602
  Receipt Date: 20041020
  Transmission Date: 20051028
  Serious: No
  Sender: FDA-Public Use
  Company Number: US-GLAXOSMITHKLINE-A0530615A

PATIENT
  Age: 25 Year
  Sex: Female

DRUGS (2)
  1. AUGMENTIN [Suspect]
     Indication: TONSILLITIS
     Route: 048
  2. NO CONCURRENT MEDICATION [Concomitant]

REACTIONS (3)
  - HEPATOMEGALY [None]
  - URTICARIA [None]
  - VOMITING [None]
